FAERS Safety Report 23527991 (Version 1)
Quarter: 2024Q1

REPORT INFORMATION
  Report Type: Spontaneous
  Country: JP (occurrence: JP)
  Receive Date: 20240215
  Receipt Date: 20240215
  Transmission Date: 20240410
  Serious: Yes (Hospitalization)
  Sender: FDA-Public Use
  Company Number: JP-Eisai-202313931_LEN-HCC_P_1

PATIENT
  Sex: Female

DRUGS (4)
  1. LENVIMA [Suspect]
     Active Substance: LENVATINIB
     Indication: Hepatic cancer
     Route: 048
  2. DURVALUMAB [Concomitant]
     Active Substance: DURVALUMAB
     Indication: Hepatic cancer
     Dosage: DOSE UNKNOWN
     Route: 065
  3. TREMELIMUMAB [Concomitant]
     Active Substance: TREMELIMUMAB
     Indication: Hepatic cancer
     Dosage: DOSE UNKNOWN
     Route: 065
  4. PREDNISOLONE [Concomitant]
     Active Substance: PREDNISOLONE
     Indication: Skin disorder
     Route: 065

REACTIONS (2)
  - Decreased appetite [Unknown]
  - Dehydration [Unknown]
